FAERS Safety Report 19391284 (Version 1)
Quarter: 2021Q2

REPORT INFORMATION
  Report Type: Spontaneous
  Country: US (occurrence: US)
  Receive Date: 20210609
  Receipt Date: 20210609
  Transmission Date: 20210717
  Serious: No
  Sender: FDA-Public Use
  Company Number: US-ASTRAZENECA-2021A423453

PATIENT
  Sex: Female
  Weight: 88 kg

DRUGS (2)
  1. BREZTRI AEROSPHERE [Suspect]
     Active Substance: BUDESONIDE\FORMOTEROL\GLYCOPYRRONIUM
     Indication: CHRONIC OBSTRUCTIVE PULMONARY DISEASE
     Dosage: INHALATION, 2 PUFFS TWICE DAILY
     Route: 055
     Dates: start: 20210503
  2. BREZTRI AEROSPHERE [Suspect]
     Active Substance: BUDESONIDE\FORMOTEROL\GLYCOPYRRONIUM
     Indication: EMPHYSEMA
     Dosage: INHALATION, 2 PUFFS TWICE DAILY
     Route: 055
     Dates: start: 20210503

REACTIONS (2)
  - Tremor [Not Recovered/Not Resolved]
  - Feeling abnormal [Unknown]
